FAERS Safety Report 8356196-2 (Version None)
Quarter: 2012Q2

REPORT INFORMATION
  Report Type: 
  Country: None (occurrence: None)
  Receive Date: 20120514
  Receipt Date: 20120502
  Transmission Date: 20120825
  Serious: Yes (Hospitalization, Other)
  Sender: FDA-Public Use
  Company Number: FR-JNJFOC-20120305567

PATIENT
  Sex: Male
  Weight: 85 kg

DRUGS (3)
  1. STELARA [Suspect]
     Route: 058
  2. STELARA [Suspect]
     Dosage: TREATMENT INITIATED AT LEASE 6 MONTHS BEFORE REPORT
     Route: 058
     Dates: start: 20101205
  3. STELARA [Suspect]
     Indication: PSORIASIS
     Dosage: TREATMENT INITIATED AT LEASE 6 MONTHS BEFORE REPORT
     Route: 058
     Dates: start: 20101105

REACTIONS (1)
  - MONOCLONAL IMMUNOGLOBULIN PRESENT [None]
